FAERS Safety Report 7113105-1 (Version None)
Quarter: 2010Q4

REPORT INFORMATION
  Report Type: 
  Country: None (occurrence: None)
  Receive Date: 20101119
  Receipt Date: 20101108
  Transmission Date: 20110411
  Serious: Yes (Hospitalization)
  Sender: FDA-Public Use
  Company Number: US-ELI_LILLY_AND_COMPANY-US201009005600

PATIENT
  Sex: Female

DRUGS (12)
  1. EVISTA [Suspect]
     Indication: OSTEOPENIA
     Dosage: 60 MG, DAILY (1/D)
     Dates: start: 20100120, end: 20100710
  2. PRILOSEC [Concomitant]
     Indication: DYSPEPSIA
     Dosage: 20 MG, DAILY (1/D)
  3. PAXIL [Concomitant]
     Dosage: 10 MG, UNK
  4. OXYBUTYNIN [Concomitant]
     Dosage: 5 MG, DAILY (1/D)
  5. LISINOPRIL [Concomitant]
     Dosage: 40 MG, 2/D
  6. TORSEMIDE [Concomitant]
     Dosage: 10 MG, DAILY (1/D)
  7. LOVASTATIN [Concomitant]
     Dosage: 40 MG, UNK
  8. MULTI-VITAMIN [Concomitant]
  9. VITAMIN B6 [Concomitant]
     Dosage: 100 MG, UNK
  10. VITAMIN B-12 [Concomitant]
     Dosage: 1000 UG, UNK
  11. CINNAMON [Concomitant]
     Dosage: 500 MG, UNK
  12. CALCIUM + VITAMIN D [Concomitant]
     Dosage: 500 MG, UNK

REACTIONS (1)
  - PULMONARY EMBOLISM [None]
